FAERS Safety Report 18254462 (Version 4)
Quarter: 2021Q1

REPORT INFORMATION
  Report Type: Spontaneous
  Country: US (occurrence: US)
  Receive Date: 20200910
  Receipt Date: 20210318
  Transmission Date: 20210419
  Serious: No
  Sender: FDA-Public Use
  Company Number: US-PFIZER INC-2020350123

PATIENT
  Age: 60 Year
  Sex: Female

DRUGS (2)
  1. IBRANCE [Suspect]
     Active Substance: PALBOCICLIB
     Indication: BREAST CANCER FEMALE
     Dosage: 75 MG, ONE TABLET DAILY
     Dates: start: 20180126
  2. IBRANCE [Suspect]
     Active Substance: PALBOCICLIB
     Dosage: 75 MG, CYCLIC (QD (ONCE A DAY) X 21 DAYS Q 28 DAYS)
     Dates: start: 20180127

REACTIONS (10)
  - Gastrointestinal disorder [Unknown]
  - Asthenia [Unknown]
  - Arthropathy [Unknown]
  - Headache [Unknown]
  - Sitting disability [Unknown]
  - Pain [Unknown]
  - Dysstasia [Unknown]
  - Gait disturbance [Unknown]
  - Musculoskeletal stiffness [Unknown]
  - Sinus disorder [Unknown]
